FAERS Safety Report 7605089-4 (Version None)
Quarter: 2011Q3

REPORT INFORMATION
  Report Type: 
  Country: None (occurrence: None)
  Receive Date: 20110713
  Receipt Date: 20110706
  Transmission Date: 20111222
  Serious: Yes (Hospitalization)
  Sender: FDA-Public Use
  Company Number: JP-AMGEN-JPNSP2011034466

PATIENT
  Age: 67 Year
  Sex: Male

DRUGS (6)
  1. CELECOXIB [Concomitant]
     Dosage: UNK
     Route: 048
  2. ISONIAZID [Concomitant]
     Dosage: UNK
  3. METHOTREXATE [Concomitant]
     Dosage: UNK
  4. PYDOXAL [Concomitant]
     Dosage: UNK
  5. ENBREL [Suspect]
     Indication: RHEUMATOID ARTHRITIS
     Dosage: 50 MG, WEEKLY
     Route: 058
     Dates: start: 20110501, end: 20110706
  6. MUCOSTA [Concomitant]
     Dosage: UNK
     Route: 048

REACTIONS (1)
  - OEDEMA PERIPHERAL [None]
